FAERS Safety Report 18457621 (Version 2)
Quarter: 2020Q4

REPORT INFORMATION
  Report Type: Spontaneous
  Country: US (occurrence: US)
  Receive Date: 20201103
  Receipt Date: 20201201
  Transmission Date: 20210114
  Serious: No
  Sender: FDA-Public Use
  Company Number: US-BAYER-2020-236263

PATIENT
  Age: 30 Year
  Sex: Female

DRUGS (2)
  1. MIRENA [Suspect]
     Active Substance: LEVONORGESTREL
     Indication: CONTRACEPTION
     Dosage: 20 ?G PER DAY CONTINOUSLY
     Route: 015
     Dates: start: 20201029
  2. MIRENA [Suspect]
     Active Substance: LEVONORGESTREL
     Indication: CONTRACEPTION
     Dosage: 20 ?G PER DAY CONTINOUSLY
     Route: 015
     Dates: end: 20201029

REACTIONS (9)
  - Mood altered [Not Recovered/Not Resolved]
  - Abdominal pain upper [None]
  - Vaginal odour [None]
  - Anxiety [Not Recovered/Not Resolved]
  - Depression [Not Recovered/Not Resolved]
  - Procedural pain [Recovered/Resolved]
  - Abdominal pain lower [Recovered/Resolved]
  - Stress [Not Recovered/Not Resolved]
  - Fear [Recovered/Resolved]

NARRATIVE: CASE EVENT DATE: 202010
